FAERS Safety Report 7505612-4 (Version None)
Quarter: 2011Q2

REPORT INFORMATION
  Report Type: 
  Country: None (occurrence: None)
  Receive Date: 20110526
  Receipt Date: 20110523
  Transmission Date: 20111010
  Serious: Yes (Other)
  Sender: FDA-Public Use
  Company Number: US-PFIZER INC-2011036691

PATIENT
  Sex: Female
  Weight: 81.633 kg

DRUGS (3)
  1. XANAX [Suspect]
     Indication: ANXIETY
  2. XANAX [Suspect]
     Indication: PANIC ATTACK
     Dosage: 0.5 MG, BID-TID
     Route: 048
     Dates: start: 19900101
  3. ADVIL LIQUI-GELS [Concomitant]
     Indication: PAIN
     Dosage: UNK

REACTIONS (12)
  - AGITATION [None]
  - PANIC REACTION [None]
  - HAEMATURIA [None]
  - POOR QUALITY SLEEP [None]
  - NERVOUSNESS [None]
  - DISCOMFORT [None]
  - PROTEINURIA [None]
  - HYPERTENSION [None]
  - ANTINUCLEAR ANTIBODY POSITIVE [None]
  - SOMNOLENCE [None]
  - RETINAL DETACHMENT [None]
  - DRUG EFFECT DECREASED [None]
